FAERS Safety Report 7365891-3 (Version None)
Quarter: 2011Q1

REPORT INFORMATION
  Report Type: 
  Country: None (occurrence: None)
  Receive Date: 20110322
  Receipt Date: 20110317
  Transmission Date: 20110831
  Serious: Yes (Death)
  Sender: FDA-Public Use
  Company Number: US-ASTELLAS-2011US000604

PATIENT
  Sex: Male

DRUGS (2)
  1. PROGRAF [Suspect]
     Indication: LIVER TRANSPLANT
     Dosage: 2 MG, BID
     Route: 048
     Dates: start: 20030509, end: 20110212
  2. PROGRAF [Suspect]
     Dosage: 4 MG, BID
     Route: 065

REACTIONS (5)
  - RENAL FAILURE [None]
  - LEUKOPENIA [None]
  - THROMBOCYTOPENIA [None]
  - SPLENOMEGALY [None]
  - CARDIAC FAILURE CONGESTIVE [None]
